FAERS Safety Report 4676347-0 (Version None)
Quarter: 2005Q2

REPORT INFORMATION
  Report Type: 
  Country: None (occurrence: None)
  Receive Date: 20050527
  Receipt Date: 20050224
  Transmission Date: 20051028
  Serious: No
  Sender: FDA-Public Use
  Company Number: US-GLAXOSMITHKLINE-A0546999A

PATIENT
  Age: 46 Year
  Sex: Female
  Weight: 116.4 kg

DRUGS (2)
  1. WELLBUTRIN XL [Suspect]
     Indication: DEPRESSION
     Dosage: 300MG PER DAY
     Route: 048
     Dates: start: 20040802, end: 20041018
  2. ATIVAN [Concomitant]
     Dosage: .5MG AS REQUIRED

REACTIONS (1)
  - VERTIGO [None]
